FAERS Safety Report 10101287 (Version 2)
Quarter: 2014Q2

REPORT INFORMATION
  Report Type: Spontaneous
  Country: US (occurrence: US)
  Receive Date: 20140424
  Receipt Date: 20140430
  Transmission Date: 20141212
  Serious: Yes (Other)
  Sender: FDA-Public Use
  Company Number: US-PFIZER INC-2014112338

PATIENT
  Age: 58 Year
  Sex: Male
  Weight: 84.81 kg

DRUGS (9)
  1. LYRICA [Suspect]
     Indication: NEURALGIA
     Dosage: 200 MG, 3X/DAY
     Route: 048
     Dates: start: 2014, end: 201404
  2. LYRICA [Suspect]
     Indication: NEURALGIA
     Dosage: 200 MG, (FOUR OR FIVE TIMES A DAY)
     Route: 048
     Dates: start: 201404
  3. OXYCONTIN [Concomitant]
     Indication: PAIN
     Dosage: 60 MG, 2X/DAY
  4. OXYCONTIN [Concomitant]
     Dosage: 150 MG
  5. OXYCODONE [Concomitant]
     Dosage: 5 MG, UNK
  6. XANAX [Concomitant]
     Dosage: UNK
  7. FAMOTIDINE [Concomitant]
     Indication: DYSPEPSIA
     Dosage: UNK
  8. PROZAC [Concomitant]
     Indication: DEPRESSION
     Dosage: UNK
  9. AMBIEN [Concomitant]
     Dosage: UNK

REACTIONS (6)
  - Intentional product misuse [Unknown]
  - Weight increased [Unknown]
  - Suicidal ideation [Unknown]
  - Therapeutic response changed [Unknown]
  - Pre-existing condition improved [Unknown]
  - Drug ineffective [Unknown]
